FAERS Safety Report 15343653 (Version 1)
Quarter: 2018Q3

REPORT INFORMATION
  Report Type: Spontaneous
  Country: US (occurrence: US)
  Receive Date: 20180903
  Receipt Date: 20180903
  Transmission Date: 20181010
  Serious: No
  Sender: FDA-Public Use
  Company Number: US-PFIZER INC-2018352658

PATIENT
  Age: 65 Year
  Sex: Female
  Weight: 61.69 kg

DRUGS (1)
  1. KERYDIN [Suspect]
     Active Substance: TAVABOROLE
     Indication: ONYCHOMYCOSIS
     Dosage: 5% 1 DROP ON AFFECT TOE LEFT FOOT ONCE A DAY

REACTIONS (6)
  - Localised infection [Unknown]
  - Contusion [Unknown]
  - Rash pustular [Unknown]
  - Erythema [Not Recovered/Not Resolved]
  - Scab [Unknown]
  - Burning sensation [Unknown]

NARRATIVE: CASE EVENT DATE: 201808
